FAERS Safety Report 7600885-1 (Version None)
Quarter: 2011Q3

REPORT INFORMATION
  Report Type: 
  Country: None (occurrence: None)
  Receive Date: 20110708
  Receipt Date: 20110708
  Transmission Date: 20111222
  Serious: Yes (Other)
  Sender: FDA-Public Use
  Company Number: None

PATIENT
  Sex: Female
  Weight: 21.1 kg

DRUGS (2)
  1. DEPAKOTE [Suspect]
     Indication: CONVULSION
     Dosage: BID PO
     Route: 048
  2. KEPPRA [Suspect]
     Dosage: BID PO
     Route: 048
     Dates: start: 20090417

REACTIONS (1)
  - THERAPEUTIC RESPONSE UNEXPECTED WITH DRUG SUBSTITUTION [None]
